FAERS Safety Report 4552935-7 (Version None)
Quarter: 2005Q1

REPORT INFORMATION
  Report Type: 
  Country: None (occurrence: None)
  Receive Date: 20050113
  Receipt Date: 20050105
  Transmission Date: 20050727
  Serious: Yes (Other)
  Sender: FDA-Public Use
  Company Number: 2005005317

PATIENT
  Age: 47 Year
  Sex: Female
  Weight: 66.2252 kg

DRUGS (2)
  1. DEPO-PROVERA [Suspect]
     Indication: ILL-DEFINED DISORDER
     Dosage: SEE IMAGE
     Route: 030
     Dates: start: 19980301, end: 19980301
  2. DEPO-PROVERA [Suspect]
     Indication: ILL-DEFINED DISORDER
     Dosage: SEE IMAGE
     Route: 030
     Dates: start: 20041214, end: 20041214

REACTIONS (8)
  - BACK PAIN [None]
  - BLOOD IRON DECREASED [None]
  - FEELING COLD [None]
  - FEELING HOT [None]
  - KIDNEY INFECTION [None]
  - LOSS OF CONSCIOUSNESS [None]
  - VAGINAL DISCHARGE [None]
  - WEIGHT INCREASED [None]
